FAERS Safety Report 6274904-1 (Version None)
Quarter: 2009Q3

REPORT INFORMATION
  Report Type: 
  Country: None (occurrence: None)
  Receive Date: 20090721
  Receipt Date: 20090713
  Transmission Date: 20100115
  Serious: Yes (Hospitalization)
  Sender: FDA-Public Use
  Company Number: JP-JNJFOC-20080800888

PATIENT
  Sex: Male

DRUGS (7)
  1. ITRACONAZOLE [Suspect]
     Indication: SYSTEMIC MYCOSIS
     Route: 048
  2. LASIX [Concomitant]
     Route: 048
  3. LASIX [Concomitant]
     Indication: OEDEMA PERIPHERAL
     Route: 048
  4. LASIX [Concomitant]
     Indication: OEDEMA
     Route: 042
  5. AMIGRAND [Concomitant]
     Indication: DECREASED APPETITE
     Route: 042
  6. FAROM [Concomitant]
     Indication: PNEUMONIA
     Route: 048
  7. SILECE [Concomitant]
     Indication: INSOMNIA
     Route: 048

REACTIONS (6)
  - FATIGUE [None]
  - GENERALISED OEDEMA [None]
  - PNEUMONIA [None]
  - PULMONARY CONGESTION [None]
  - RENAL DISORDER [None]
  - RIGHT VENTRICULAR FAILURE [None]
